FAERS Safety Report 6980507-3 (Version None)
Quarter: 2010Q3

REPORT INFORMATION
  Report Type: 
  Country: None (occurrence: None)
  Receive Date: 20100914
  Receipt Date: 20100901
  Transmission Date: 20110219
  Serious: Yes (Hospitalization)
  Sender: FDA-Public Use
  Company Number: PHHY2010FR58216

PATIENT
  Sex: Female

DRUGS (7)
  1. AREDIA [Suspect]
     Dosage: 1 DF, ONCE/SINGLE
     Route: 042
     Dates: start: 20100409
  2. ZOMETA [Suspect]
     Dosage: 4 MG, QMO
     Route: 042
     Dates: start: 20100416
  3. AROMASIN [Suspect]
     Dosage: 25 MG, QD
     Route: 048
     Dates: start: 20100409, end: 20100805
  4. SKENAN LP [Suspect]
     Dosage: 20 MG, BID
     Dates: start: 20100406, end: 20100801
  5. MORPHINE [Suspect]
     Dosage: 10 MG, EVERY FOUR HOURS
     Dates: start: 20100406
  6. ANTI-ESTROGENS [Concomitant]
     Dosage: UNK
  7. RADIOTHERAPY [Concomitant]
     Dosage: UNK

REACTIONS (6)
  - CUTANEOUS LUPUS ERYTHEMATOSUS [None]
  - ECZEMA [None]
  - PRURITUS [None]
  - SKIN LESION [None]
  - SUPERINFECTION [None]
  - TOXIC SKIN ERUPTION [None]
